FAERS Safety Report 18479658 (Version 1)
Quarter: 2020Q4

REPORT INFORMATION
  Report Type: Spontaneous
  Country: US (occurrence: US)
  Receive Date: 20201109
  Receipt Date: 20201109
  Transmission Date: 20210114
  Serious: Yes (Hospitalization)
  Sender: FDA-Public Use
  Company Number: None

PATIENT
  Sex: Female

DRUGS (7)
  1. HUMIRA [Suspect]
     Active Substance: ADALIMUMAB
     Indication: ARTHRITIS
     Route: 058
     Dates: start: 20180425
  2. DOXYCYCL HYC [Concomitant]
  3. BRIMONIDINE [Concomitant]
     Active Substance: BRIMONIDINE TARTRATE
  4. DOROZOLAMIDE [Concomitant]
  5. DILTIAZEM ER [Concomitant]
     Active Substance: DILTIAZEM
  6. ACETAZOLAMID [Concomitant]
     Active Substance: ACETAZOLAMIDE
  7. DUREZOL [Concomitant]
     Active Substance: DIFLUPREDNATE

REACTIONS (4)
  - Condition aggravated [None]
  - Therapy interrupted [None]
  - Bronchitis [None]
  - Pain [None]
